FAERS Safety Report 7928933-X (Version None)
Quarter: 2011Q4

REPORT INFORMATION
  Report Type: 
  Country: None (occurrence: None)
  Receive Date: 20111118
  Receipt Date: 20111113
  Transmission Date: 20120403
  Serious: Yes (Death)
  Sender: FDA-Public Use
  Company Number: IL-ROCHE-1012514

PATIENT
  Sex: Male
  Weight: 93 kg

DRUGS (4)
  1. INSULIN [Concomitant]
     Indication: DIABETES MELLITUS
  2. RENAGEL [Concomitant]
     Route: 048
  3. ASPIRIN [Concomitant]
  4. MIRCERA [Suspect]
     Indication: ANAEMIA
     Route: 042
     Dates: start: 20110315

REACTIONS (2)
  - PYREXIA [None]
  - BACTERAEMIA [None]
